FAERS Safety Report 13997005 (Version 4)
Quarter: 2018Q1

REPORT INFORMATION
  Report Type: Spontaneous
  Country: TW (occurrence: TW)
  Receive Date: 20170921
  Receipt Date: 20180205
  Transmission Date: 20180508
  Serious: Yes (Hospitalization)
  Sender: FDA-Public Use
  Company Number: TW-ASTELLAS-2017US037620

PATIENT
  Age: 20 Year
  Sex: Male

DRUGS (6)
  1. PROGRAF [Suspect]
     Active Substance: TACROLIMUS\TACROLIMUS ANHYDROUS
     Dosage: 16MG (DAILY DOSE), TWICE DAILY
     Route: 048
     Dates: start: 20170911, end: 20170914
  2. PROGRAF [Suspect]
     Active Substance: TACROLIMUS\TACROLIMUS ANHYDROUS
     Dosage: 26 MG (DAILY DOSE), TWICE DAILY
     Route: 048
     Dates: start: 2017, end: 20171217
  3. PROGRAF [Suspect]
     Active Substance: TACROLIMUS\TACROLIMUS ANHYDROUS
     Dosage: 24MG (DAILY DOSE), TWICE DAILY
     Route: 048
     Dates: start: 20170914, end: 2017
  4. PROGRAF [Suspect]
     Active Substance: TACROLIMUS\TACROLIMUS ANHYDROUS
     Dosage: 24 MG (DAILY DOSE), TWICE DAILY
     Route: 048
     Dates: start: 20171218
  5. PROGRAF [Suspect]
     Active Substance: TACROLIMUS\TACROLIMUS ANHYDROUS
     Indication: PROPHYLAXIS AGAINST TRANSPLANT REJECTION
     Dosage: 10 MG (DAILY DOSE), TWICE DAILY
     Route: 048
     Dates: start: 20170906, end: 20170911
  6. MYCOPHENOLATE MOFETIL. [Concomitant]
     Active Substance: MYCOPHENOLATE MOFETIL
     Indication: PROPHYLAXIS AGAINST TRANSPLANT REJECTION
     Dosage: 1500MG (DAILY DOSE), TWICE DAILY
     Route: 048
     Dates: start: 201709

REACTIONS (4)
  - Inappropriate schedule of drug administration [Unknown]
  - Immunosuppressant drug level decreased [Recovered/Resolved]
  - Pyrexia [Recovered/Resolved]
  - Urinary tract infection [Recovered/Resolved]

NARRATIVE: CASE EVENT DATE: 20170906
